FAERS Safety Report 5059994-6 (Version None)
Quarter: 2006Q3

REPORT INFORMATION
  Report Type: 
  Country: None (occurrence: None)
  Receive Date: 20060724
  Receipt Date: 20060719
  Transmission Date: 20061208
  Serious: Yes (Other)
  Sender: FDA-Public Use
  Company Number: US-GLAXOSMITHKLINE-A0612752A

PATIENT
  Age: 70 Year
  Sex: Male

DRUGS (8)
  1. CITRUCEL REGULAR SUSPENSION [Suspect]
     Indication: CONSTIPATION
  2. DIOVAN [Concomitant]
  3. FLOMAX [Concomitant]
  4. LORAZEPAM [Concomitant]
  5. DOCUSATE SODIUM [Concomitant]
  6. PAXIL [Concomitant]
  7. METHOCARBAMOL [Concomitant]
  8. RISPERIDONE [Concomitant]

REACTIONS (3)
  - BLOOD GLUCOSE INCREASED [None]
  - HYPOGLYCAEMIA [None]
  - MALAISE [None]
